FAERS Safety Report 8178813-2 (Version None)
Quarter: 2012Q1

REPORT INFORMATION
  Report Type: 
  Country: None (occurrence: None)
  Receive Date: 20120301
  Receipt Date: 20120217
  Transmission Date: 20120608
  Serious: Yes (Other)
  Sender: FDA-Public Use
  Company Number: JP-BRISTOL-MYERS SQUIBB COMPANY-16408130

PATIENT
  Age: 70 Year
  Sex: Female

DRUGS (3)
  1. CONTRAST AGENT [Suspect]
  2. WARFARIN SODIUM [Suspect]
  3. MAXIPIME [Suspect]
     Indication: ENDOCARDITIS
     Route: 042
     Dates: start: 20120203, end: 20120219

REACTIONS (2)
  - RENAL FAILURE ACUTE [None]
  - INTERNATIONAL NORMALISED RATIO DECREASED [None]
